FAERS Safety Report 10343053 (Version 2)
Quarter: 2014Q3

REPORT INFORMATION
  Report Type: Spontaneous
  Country: PL (occurrence: PL)
  Receive Date: 20140725
  Receipt Date: 20140805
  Transmission Date: 20150326
  Serious: Yes (Death, Other)
  Sender: FDA-Public Use
  Company Number: PL-BRISTOL-MYERS SQUIBB COMPANY-21227988

PATIENT
  Age: 67 Year
  Sex: Male
  Weight: 67 kg

DRUGS (1)
  1. ERBITUX [Suspect]
     Active Substance: CETUXIMAB
     Indication: SQUAMOUS CELL CARCINOMA OF HEAD AND NECK
     Dosage: 2 INF:330MG; IV-17MAR2014
     Route: 042
     Dates: start: 20140305, end: 20140317

REACTIONS (2)
  - Myocardial infarction [Fatal]
  - Chest pain [Unknown]

NARRATIVE: CASE EVENT DATE: 20140317
